FAERS Safety Report 25445369 (Version 1)
Quarter: 2025Q2

REPORT INFORMATION
  Report Type: Spontaneous
  Country: US (occurrence: US)
  Receive Date: 20250617
  Receipt Date: 20250617
  Transmission Date: 20250716
  Serious: No
  Sender: CURIUM PHARMACEUTICALS
  Company Number: US-CURIUM-2025000359

PATIENT
  Age: 78 Year
  Sex: Male

DRUGS (9)
  1. IOFLUPANE I-123 [Suspect]
     Active Substance: IOFLUPANE I-123
     Indication: Dopamine transporter scintigraphy
     Route: 051
     Dates: start: 20250416, end: 20250416
  2. SSKI [Concomitant]
     Active Substance: POTASSIUM IODIDE
     Indication: Prophylaxis
     Route: 065
     Dates: start: 20250416, end: 20250416
  3. AMANTADINE [Interacting]
     Active Substance: AMANTADINE
     Indication: Product used for unknown indication
     Route: 065
  4. CARBIDOPA\LEVODOPA [Interacting]
     Active Substance: CARBIDOPA\LEVODOPA
     Indication: Product used for unknown indication
     Route: 065
  5. BUSPIRONE HCL [Concomitant]
     Active Substance: BUSPIRONE HYDROCHLORIDE
     Indication: Product used for unknown indication
     Route: 065
  6. PRAZOSIN HYDROCHLORIDE [Concomitant]
     Active Substance: PRAZOSIN HYDROCHLORIDE
     Indication: Product used for unknown indication
     Route: 065
  7. SERTRALINE HYDROCHLORIDE [Concomitant]
     Active Substance: SERTRALINE HYDROCHLORIDE
     Indication: Product used for unknown indication
     Route: 065
  8. TRAZODONE HCL [Concomitant]
     Active Substance: TRAZODONE HYDROCHLORIDE
     Indication: Product used for unknown indication
     Route: 065
  9. ZOLPIDEM TARTRATE [Concomitant]
     Active Substance: ZOLPIDEM TARTRATE
     Indication: Product used for unknown indication
     Route: 065

REACTIONS (2)
  - Dopamine transporter scintigraphy abnormal [Recovered/Resolved]
  - Labelled drug-drug interaction issue [Recovered/Resolved]

NARRATIVE: CASE EVENT DATE: 20250416
